FAERS Safety Report 24378274 (Version 1)
Quarter: 2024Q3

REPORT INFORMATION
  Report Type: Spontaneous
  Country: US (occurrence: US)
  Receive Date: 20240930
  Receipt Date: 20240930
  Transmission Date: 20241017
  Serious: Yes (Hospitalization, Other)
  Sender: DAIICHI
  Company Number: US-DSJP-DS-2024-101560-US

PATIENT
  Age: 61 Year
  Sex: Female
  Weight: 62.142 kg

DRUGS (2)
  1. ENHERTU [Suspect]
     Active Substance: FAM-TRASTUZUMAB DERUXTECAN-NXKI
     Indication: Breast cancer
     Dosage: 5.4 MG/M2, ONCE EVERY 3 WK
     Route: 042
     Dates: start: 20240801, end: 20240801
  2. ENHERTU [Suspect]
     Active Substance: FAM-TRASTUZUMAB DERUXTECAN-NXKI
     Dosage: 3.2 MG/M2, ONCE EVERY 3 WK
     Route: 042

REACTIONS (1)
  - Neutropenia [Recovered/Resolved]

NARRATIVE: CASE EVENT DATE: 20240814
